FAERS Safety Report 5748138-0 (Version None)
Quarter: 2008Q2

REPORT INFORMATION
  Report Type: 
  Country: None (occurrence: None)
  Receive Date: 20080523
  Receipt Date: 20080429
  Transmission Date: 20081010
  Serious: Yes (Other)
  Sender: FDA-Public Use
  Company Number: US-BOEHRINGER INGELHEIM GMBH, GERMANY-2008-BP-06993BP

PATIENT
  Sex: Female

DRUGS (5)
  1. CATAPRES [Suspect]
  2. DILTIAZEM [Suspect]
     Indication: BLOOD PRESSURE
     Dates: start: 20060101
  3. TENORMIN [Concomitant]
     Dates: start: 19800101
  4. COUMADIN [Concomitant]
     Dates: end: 20070701
  5. TYLENOL [Concomitant]

REACTIONS (2)
  - ATRIAL FIBRILLATION [None]
  - SOMNAMBULISM [None]
